FAERS Safety Report 21939492 (Version 1)
Quarter: 2023Q1

REPORT INFORMATION
  Report Type: Spontaneous
  Country: US (occurrence: US)
  Receive Date: 20230201
  Receipt Date: 20230201
  Transmission Date: 20230418
  Serious: No
  Sender: FDA-Public Use
  Company Number: US-009507513-2301USA009415

PATIENT
  Age: 50 Year
  Sex: Male

DRUGS (7)
  1. CUBICIN [Suspect]
     Active Substance: DAPTOMYCIN
     Indication: Staphylococcal bacteraemia
     Dosage: 10 MG/KG (550 MG) IV Q24H
     Route: 042
  2. GENTAMICIN [Concomitant]
     Active Substance: GENTAMICIN
     Dosage: UNK
  3. AVIBACTAM SODIUM\CEFTAZIDIME [Concomitant]
     Active Substance: AVIBACTAM SODIUM\CEFTAZIDIME
     Dosage: UNK
  4. CEFTAROLINE [Concomitant]
     Active Substance: CEFTAROLINE
     Dosage: UNK
  5. ERAVACYCLINE [Concomitant]
     Active Substance: ERAVACYCLINE
     Indication: Osteomyelitis
     Dosage: 1 MG/KG (57 MG) IV Q12H
     Route: 042
  6. POLYMYXIN [Concomitant]
     Active Substance: POLYMYXIN
     Indication: Osteomyelitis
     Dosage: 15,000 UNITS IV Q12H
     Route: 042
  7. CEFEPIME [Concomitant]
     Active Substance: CEFEPIME HYDROCHLORIDE
     Indication: Osteomyelitis
     Dosage: 2 G IV Q12H
     Route: 042

REACTIONS (1)
  - Product use issue [Unknown]
